FAERS Safety Report 5589715-X (Version None)
Quarter: 2008Q1

REPORT INFORMATION
  Report Type: 
  Country: None (occurrence: None)
  Receive Date: 20080114
  Receipt Date: 20080107
  Transmission Date: 20080703
  Serious: Yes (Disabling)
  Sender: FDA-Public Use
  Company Number: B0501238A

PATIENT
  Age: 70 Year
  Sex: Female
  Weight: 45 kg

DRUGS (4)
  1. ARIXTRA [Suspect]
     Dosage: 2.5MG PER DAY
     Route: 058
     Dates: start: 20071025, end: 20071120
  2. ARAVA [Concomitant]
     Indication: RHEUMATOID ARTHRITIS
     Dates: start: 20020101
  3. CORTISONE ACETATE TAB [Concomitant]
  4. CONTRAMAL [Concomitant]

REACTIONS (4)
  - CEREBRAL HAEMATOMA [None]
  - HYPOAESTHESIA [None]
  - MONOPLEGIA [None]
  - SENSORY LOSS [None]
